FAERS Safety Report 6770383-6 (Version None)
Quarter: 2010Q2

REPORT INFORMATION
  Report Type: 
  Country: None (occurrence: None)
  Receive Date: 20100615
  Receipt Date: 20100604
  Transmission Date: 20101027
  Serious: Yes (Hospitalization)
  Sender: FDA-Public Use
  Company Number: US-PFIZER INC-2010071148

PATIENT
  Sex: Male
  Weight: 105 kg

DRUGS (6)
  1. VIAGRA [Suspect]
     Indication: ERECTILE DYSFUNCTION
     Dosage: 50 MG, AS NEEDED
     Dates: start: 20091101, end: 20090101
  2. WARFARIN SODIUM [Suspect]
     Indication: THROMBOSIS
     Dosage: 5 MG, DAILY
     Dates: start: 20091001
  3. SYNTHROID [Concomitant]
     Indication: HYPOTHYROIDISM
     Dosage: 0.175 MG, UNK
  4. VITAMIN D3 [Concomitant]
     Dosage: 500 MG, UNK
  5. VITAMIN B1 TAB [Concomitant]
     Dosage: 50 MG, UNK
  6. GUARANA [Concomitant]
     Dosage: 900 MG, UNK

REACTIONS (3)
  - DRUG EFFECT DECREASED [None]
  - ERECTILE DYSFUNCTION [None]
  - THROMBOSIS [None]
